FAERS Safety Report 9216416 (Version 1)
Quarter: 2013Q2

REPORT INFORMATION
  Report Type: Spontaneous
  Country: US (occurrence: None)
  Receive Date: 20130402
  Receipt Date: 20130402
  Transmission Date: 20140414
  Serious: Yes (Other)
  Sender: FDA-Public Use
  Company Number: DSU-2013-02378

PATIENT
  Age: 47 Year
  Sex: Female
  Weight: 77.11 kg

DRUGS (4)
  1. TRIBENZOR [Suspect]
     Indication: HYPERTENSION
     Dosage: 20/5/12.5 MGQDPO
     Route: 048
     Dates: start: 2010
  2. BEER [Suspect]
     Indication: PRODUCT USED FOR UNKNOWN INDICATION
  3. HYZAAR [Concomitant]
  4. NAPROXEN [Concomitant]

REACTIONS (11)
  - Weight increased [None]
  - Muscle spasms [None]
  - Joint swelling [None]
  - Headache [None]
  - Abdominal discomfort [None]
  - Diarrhoea [None]
  - Fatigue [None]
  - Vomiting [None]
  - Glucose tolerance impaired [None]
  - Hepatitis alcoholic [None]
  - Adverse event [None]
